FAERS Safety Report 5475171-9 (Version None)
Quarter: 2007Q4

REPORT INFORMATION
  Report Type: 
  Country: None (occurrence: None)
  Receive Date: 20071002
  Receipt Date: 20070920
  Transmission Date: 20080405
  Serious: Yes (Other)
  Sender: FDA-Public Use
  Company Number: US-ELI_LILLY_AND_COMPANY-US200708001423

PATIENT
  Age: 67 Year
  Sex: Female
  Weight: 57.596 kg

DRUGS (6)
  1. ASPIRIN [Concomitant]
     Dosage: 81 MG, DAILY (1/D)
  2. CALCITRATE [Concomitant]
     Dosage: 600 MG, DAILY (1/D)
  3. VITAMIN D [Concomitant]
  4. CLARITIN [Concomitant]
  5. NAPROXEN [Concomitant]
  6. FORTEO [Suspect]
     Indication: OSTEOPOROSIS
     Dosage: 20 UG, DAILY (1/D)
     Dates: start: 20070627

REACTIONS (4)
  - ANXIETY [None]
  - DIZZINESS [None]
  - FALL [None]
  - PELVIC FRACTURE [None]
